FAERS Safety Report 22519578 (Version 1)
Quarter: 2023Q2

REPORT INFORMATION
  Report Type: Spontaneous
  Country: RU (occurrence: RU)
  Receive Date: 20230605
  Receipt Date: 20230605
  Transmission Date: 20230722
  Serious: Yes (Hospitalization)
  Sender: FDA-Public Use
  Company Number: RU-drreddys-LIT/RUS/23/0166109

PATIENT
  Age: 56 Year
  Sex: Female

DRUGS (5)
  1. TELMISARTAN [Suspect]
     Active Substance: TELMISARTAN
     Indication: Product used for unknown indication
  2. OMEPRAZOLE [Suspect]
     Active Substance: OMEPRAZOLE
     Indication: Product used for unknown indication
     Dosage: EVENING WHILE TAKING NONSTEROIDAL ANTI-INFLAMMATORY DRUGS
  3. BISOPROLOL [Concomitant]
     Active Substance: BISOPROLOL
     Indication: Product used for unknown indication
     Dosage: 1 TABLET AT LUNCH FOR A LONG TIME WITH HEART RATE MONITORING
  4. LOSARTAN [Concomitant]
     Active Substance: LOSARTAN
     Indication: Product used for unknown indication
     Dosage: 1 TABLET IN THE EVENING WITH BP MONITORING FOR A LONG TIME
  5. COLCHICINE [Concomitant]
     Active Substance: COLCHICINE
     Indication: Product used for unknown indication

REACTIONS (6)
  - Thyroiditis subacute [Unknown]
  - Pericarditis [Unknown]
  - Condition aggravated [Unknown]
  - Tricuspid valve incompetence [Unknown]
  - Hypertensive nephropathy [Unknown]
  - Cardiac failure chronic [Unknown]
